FAERS Safety Report 7670043-3 (Version None)
Quarter: 2011Q3

REPORT INFORMATION
  Report Type: 
  Country: None (occurrence: None)
  Receive Date: 20110808
  Receipt Date: 20110623
  Transmission Date: 20111222
  Serious: No
  Sender: FDA-Public Use
  Company Number: US-BAYER-2011-056082

PATIENT
  Age: 59 Year
  Sex: Male
  Weight: 85 kg

DRUGS (2)
  1. ALEVE (CAPLET) [Suspect]
     Indication: ANALGESIC THERAPY
     Dosage: 2 DF, QID
     Route: 048
     Dates: start: 20101001, end: 20101101
  2. NAPROXEN (ALEVE) [Suspect]
     Indication: MYALGIA
     Dosage: 2 DF, QID
     Route: 048
     Dates: start: 20080501, end: 20080501

REACTIONS (4)
  - LETHARGY [None]
  - FATIGUE [None]
  - DIZZINESS [None]
  - NAUSEA [None]
